FAERS Safety Report 7887039-9 (Version None)
Quarter: 2011Q4

REPORT INFORMATION
  Report Type: 
  Country: None (occurrence: None)
  Receive Date: 20111102
  Receipt Date: 20110714
  Transmission Date: 20120403
  Serious: No
  Sender: FDA-Public Use
  Company Number: US-AMGEN-USASP2011035901

PATIENT
  Sex: Female

DRUGS (4)
  1. B12                                /00056201/ [Concomitant]
     Dosage: 500 MG, UNK
  2. ENBREL [Suspect]
     Dosage: 50 MG, QWK
  3. VITAMIN D                          /00318501/ [Concomitant]
     Dosage: UNK
  4. FISH OIL [Concomitant]
     Dosage: UNK

REACTIONS (1)
  - INJECTION SITE PAIN [None]
